FAERS Safety Report 24009426 (Version 1)
Quarter: 2024Q2

REPORT INFORMATION
  Report Type: Spontaneous
  Country: US (occurrence: US)
  Receive Date: 20240625
  Receipt Date: 20240625
  Transmission Date: 20240715
  Serious: Yes (Other)
  Sender: FDA-Public Use
  Company Number: US-002147023-NVSC2024US128458

PATIENT

DRUGS (1)
  1. KESIMPTA [Suspect]
     Active Substance: OFATUMUMAB
     Indication: Product used for unknown indication
     Dosage: UNK
     Route: 065

REACTIONS (11)
  - Myocardial infarction [Unknown]
  - Musculoskeletal chest pain [Unknown]
  - Chills [Unknown]
  - Abdominal discomfort [Unknown]
  - Pyrexia [Unknown]
  - Headache [Unknown]
  - Tooth injury [Unknown]
  - Decreased appetite [Unknown]
  - Hyperhidrosis [Unknown]
  - Nausea [Unknown]
  - Muscle tightness [Unknown]
